FAERS Safety Report 6688401-2 (Version None)
Quarter: 2010Q2

REPORT INFORMATION
  Report Type: 
  Country: None (occurrence: None)
  Receive Date: 20100420
  Receipt Date: 20100413
  Transmission Date: 20101027
  Serious: Yes (Hospitalization)
  Sender: FDA-Public Use
  Company Number: CZ-ROCHE-697134

PATIENT
  Age: 58 Year
  Sex: Male

DRUGS (4)
  1. AVASTIN [Suspect]
     Route: 042
     Dates: start: 20060313, end: 20080428
  2. AVASTIN [Suspect]
     Route: 042
     Dates: start: 20080808
  3. XELODA [Concomitant]
  4. OXALIPLATIN [Concomitant]
     Dosage: ADMINISTERED EIGHT TIMES

REACTIONS (1)
  - CONGESTIVE CARDIOMYOPATHY [None]
